FAERS Safety Report 10919325 (Version 2)
Quarter: 2015Q2

REPORT INFORMATION
  Report Type: Spontaneous
  Country: US (occurrence: US)
  Receive Date: 20150316
  Receipt Date: 20150402
  Transmission Date: 20150821
  Serious: No
  Sender: FDA-Public Use
  Company Number: US-009507513-1503USA006210

PATIENT
  Age: 6 Year
  Sex: Male
  Weight: 18.14 kg

DRUGS (2)
  1. MIRALAX [Suspect]
     Active Substance: POLYETHYLENE GLYCOL 3350
     Indication: CONSTIPATION
     Dosage: 8.5 G, QD
     Route: 048
     Dates: end: 20150304
  2. MIRALAX [Suspect]
     Active Substance: POLYETHYLENE GLYCOL 3350
     Dosage: 8.5 G, QD
     Route: 048
     Dates: end: 20150304

REACTIONS (5)
  - Drug administered to patient of inappropriate age [Unknown]
  - Drug prescribing error [Unknown]
  - Product odour abnormal [Unknown]
  - Product use issue [Unknown]
  - Product taste abnormal [Unknown]
